FAERS Safety Report 9199720 (Version 2)
Quarter: 2013Q2

REPORT INFORMATION
  Report Type: Spontaneous
  Country: US (occurrence: US)
  Receive Date: 20130329
  Receipt Date: 20130417
  Transmission Date: 20140414
  Serious: Yes (Hospitalization, Other)
  Sender: FDA-Public Use
  Company Number: US-PFIZER INC-2013099740

PATIENT
  Age: 43 Year
  Sex: Female
  Weight: 57.6 kg

DRUGS (2)
  1. CELEBREX [Suspect]
     Indication: ARTHRITIS
     Dosage: UNK
     Dates: start: 201302, end: 201302
  2. CELEBREX [Suspect]
     Indication: ARTHRALGIA

REACTIONS (15)
  - Stevens-Johnson syndrome [Unknown]
  - Urticaria [Unknown]
  - Rash [Unknown]
  - Pruritus generalised [Unknown]
  - Pain [Unknown]
  - Dyspnoea [Unknown]
  - Erythema [Unknown]
  - Burning sensation [Unknown]
  - Swelling face [Unknown]
  - Swelling [Unknown]
  - Malaise [Unknown]
  - Depression [Unknown]
  - Fatigue [Unknown]
  - Pigmentation disorder [Not Recovered/Not Resolved]
  - Photosensitivity reaction [Unknown]
